FAERS Safety Report 19369836 (Version 1)
Quarter: 2021Q2

REPORT INFORMATION
  Report Type: Report from Study
  Country: US (occurrence: US)
  Receive Date: 20210603
  Receipt Date: 20210603
  Transmission Date: 20210717
  Serious: Yes (Other)
  Sender: FDA-Public Use
  Company Number: US-AUROBINDO-AUR-APL-2021-021317

PATIENT
  Age: 43 Year
  Sex: Male

DRUGS (5)
  1. PEGYLATED INTERFERON ALFA?2A [Suspect]
     Active Substance: PEGINTERFERON ALFA-2A
     Indication: HEPATITIS C
     Dosage: 180 MICROGRAM, EVERY WEEK
     Route: 058
  2. RIBAVIRIN. [Suspect]
     Active Substance: RIBAVIRIN
     Indication: HEPATITIS C
     Dosage: 800 MILLIGRAM
     Route: 065
  3. TELAPREVIR [Suspect]
     Active Substance: TELAPREVIR
     Indication: HEPATITIS C
     Dosage: 2 DOSAGE FORM, 3 TIMES A DAY (2250MG/DAY)
     Route: 048
  4. ABACAVIR AND LAMIVUDINE [Suspect]
     Active Substance: ABACAVIR SULFATE\LAMIVUDINE
     Indication: HEPATITIS C
     Dosage: UNK
     Route: 065
  5. RALTEGRAVIR. [Suspect]
     Active Substance: RALTEGRAVIR
     Indication: HEPATITIS C
     Dosage: UNK
     Route: 065

REACTIONS (1)
  - Virologic failure [Unknown]
